FAERS Safety Report 6465838-8 (Version None)
Quarter: 2009Q4

REPORT INFORMATION
  Report Type: 
  Country: None (occurrence: None)
  Receive Date: 20091127
  Receipt Date: 20091111
  Transmission Date: 20100525
  Serious: Yes (Hospitalization, Other)
  Sender: FDA-Public Use
  Company Number: 000707

PATIENT
  Sex: Male
  Weight: 68.0396 kg

DRUGS (14)
  1. LACOSAMIDE [Suspect]
     Indication: EPILEPSY
     Dosage: (300 MG BID ORAL)
     Route: 048
     Dates: start: 20011217
  2. TIAGABINE HCL [Concomitant]
  3. BACTRIM [Concomitant]
  4. MULTIVITAMINS PLUS IRON [Concomitant]
  5. OXYGEN [Concomitant]
  6. LOTREL [Concomitant]
  7. TOPIRAMATE [Concomitant]
  8. PANTOPRAZOLE SODIUM [Concomitant]
  9. GABITRIL [Concomitant]
  10. LEVOTHYROXINE SODIUM [Concomitant]
  11. MESALAMINE [Concomitant]
  12. NEXIUM [Concomitant]
  13. TRIAMCINOLONE ACETONIDE [Concomitant]
  14. FOSINOPRIL SODIUM [Concomitant]

REACTIONS (8)
  - ACUTE RESPIRATORY FAILURE [None]
  - ASTHENIA [None]
  - DEHYDRATION [None]
  - DIARRHOEA [None]
  - INFECTION [None]
  - LETHARGY [None]
  - PNEUMONIA ASPIRATION [None]
  - RENAL FAILURE ACUTE [None]
